FAERS Safety Report 7529881-X (Version None)
Quarter: 2011Q2

REPORT INFORMATION
  Report Type: 
  Country: None (occurrence: None)
  Receive Date: 20110520
  Receipt Date: 20100910
  Transmission Date: 20111010
  Serious: Yes (Other)
  Sender: FDA-Public Use
  Company Number: 2010BH023507

PATIENT
  Age: 74 Year
  Sex: Female
  Weight: 88.4 kg

DRUGS (1)
  1. DOPAMINE HCL IN 5% DEXTROSE [Suspect]
     Indication: MEAN ARTERIAL PRESSURE
     Dosage: ;CONTINUOUS;IVDRI
     Route: 041
     Dates: start: 20100908, end: 20100915

REACTIONS (3)
  - BLOOD PRESSURE DECREASED [None]
  - DEVICE MALFUNCTION [None]
  - MEAN ARTERIAL PRESSURE DECREASED [None]
